FAERS Safety Report 5568782-3 (Version None)
Quarter: 2007Q4

REPORT INFORMATION
  Report Type: 
  Country: None (occurrence: None)
  Receive Date: 20071220
  Receipt Date: 20070103
  Transmission Date: 20080405
  Serious: No
  Sender: FDA-Public Use
  Company Number: A0634535A

PATIENT
  Sex: Male

DRUGS (2)
  1. AVODART [Suspect]
     Route: 048
     Dates: start: 20060101, end: 20070101
  2. FLOMAX [Concomitant]

REACTIONS (2)
  - DYSURIA [None]
  - URINE FLOW DECREASED [None]
